FAERS Safety Report 4361507-9 (Version None)
Quarter: 2004Q2

REPORT INFORMATION
  Report Type: 
  Country: None (occurrence: None)
  Receive Date: 20040521
  Receipt Date: 20031111
  Transmission Date: 20050107
  Serious: No
  Sender: FDA-Public Use
  Company Number: US-GLAXOSMITHKLINE-A0439262A

PATIENT
  Age: 40 Year
  Sex: Female

DRUGS (3)
  1. ZYBAN [Suspect]
     Dosage: 150MG TWICE PER DAY
     Route: 048
     Dates: start: 20031102
  2. PREVACID [Concomitant]
  3. ACTIGALL [Concomitant]

REACTIONS (1)
  - DRUG INEFFECTIVE [None]
